FAERS Safety Report 5975082-6 (Version None)
Quarter: 2008Q4

REPORT INFORMATION
  Report Type: 
  Country: None (occurrence: None)
  Receive Date: 20081202
  Receipt Date: 20081128
  Transmission Date: 20090506
  Serious: Yes (Other)
  Sender: FDA-Public Use
  Company Number: IT-BRISTOL-MYERS SQUIBB COMPANY-14423149

PATIENT
  Age: 67 Year
  Sex: Male

DRUGS (4)
  1. ORENCIA [Suspect]
     Indication: RHEUMATOID ARTHRITIS
     Route: 042
     Dates: start: 20080517, end: 20080729
  2. RYTMONORM [Concomitant]
     Dosage: 150 MG TABLETS
     Route: 048
     Dates: start: 20061104, end: 20081128
  3. ASPIRIN [Concomitant]
     Dates: start: 20060104, end: 20080729
  4. DELTACORTENE [Concomitant]
     Route: 048
     Dates: start: 20060104, end: 20081128

REACTIONS (1)
  - VENOUS THROMBOSIS [None]
